FAERS Safety Report 5845818-3 (Version None)
Quarter: 2008Q3

REPORT INFORMATION
  Report Type: 
  Country: None (occurrence: None)
  Receive Date: 20080814
  Receipt Date: 20080730
  Transmission Date: 20090109
  Serious: Yes (Life-Threatening, Hospitalization)
  Sender: FDA-Public Use
  Company Number: FR-GENENTECH-265457

PATIENT
  Sex: Male
  Weight: 67 kg

DRUGS (2)
  1. BEVACIZUMAB [Suspect]
     Indication: METASTATIC RENAL CELL CARCINOMA
     Dosage: 780 MG, Q2W
     Route: 042
     Dates: start: 20080402
  2. INTERFERON ALFA [Suspect]
     Indication: METASTATIC RENAL CELL CARCINOMA
     Dosage: 9 MIU, 3/WEEK
     Route: 041
     Dates: start: 20080402, end: 20080723

REACTIONS (1)
  - BASEDOW'S DISEASE [None]
